FAERS Safety Report 4579261-4 (Version None)
Quarter: 2005Q1

REPORT INFORMATION
  Report Type: 
  Country: None (occurrence: None)
  Receive Date: 20050209
  Receipt Date: 20050209
  Transmission Date: 20050727
  Serious: No
  Sender: FDA-Public Use
  Company Number: None

PATIENT
  Weight: 127.9144 kg

DRUGS (2)
  1. LASIX [Suspect]
     Indication: HYPERTENSION
     Dosage: 40 MG ONE-TWO PO BED
     Route: 048
  2. LASIX [Suspect]
     Indication: OEDEMA
     Dosage: 40 MG ONE-TWO PO BED
     Route: 048

REACTIONS (1)
  - DRUG INEFFECTIVE [None]
